FAERS Safety Report 9610641 (Version 2)
Quarter: 2013Q4

REPORT INFORMATION
  Report Type: Report from Study
  Country: US (occurrence: US)
  Receive Date: 20131009
  Receipt Date: 20131009
  Transmission Date: 20140711
  Serious: Yes (Hospitalization)
  Sender: FDA-Public Use
  Company Number: US-009507513-1211USA002563

PATIENT
  Age: 64 Year
  Sex: Female
  Weight: 68.4 kg

DRUGS (7)
  1. PEGINTERFERON ALFA-2B [Suspect]
     Indication: HIV ANTIBODY
     Dosage: 72 MICROGRAM, QW
     Route: 058
     Dates: start: 20121024
  2. PEGINTERFERON ALFA-2B [Suspect]
     Indication: HEPATITIS C
     Dosage: 80 MICROGRAM, QW
     Route: 058
     Dates: end: 20121018
  3. RIBAVIRIN [Suspect]
     Indication: HIV ANTIGEN
     Dosage: 600 MG, BID
     Route: 048
     Dates: start: 20121018, end: 20121026
  4. RIBAVIRIN [Suspect]
     Indication: HEPATITIS C
     Dosage: 600 MG, BID
     Route: 048
     Dates: start: 20121107
  5. RIBAVIRIN [Suspect]
     Dosage: 800 MG, BID
     Route: 048
     Dates: end: 20121018
  6. BOCEPREVIR [Suspect]
     Indication: HIV ANTIBODY
     Dosage: 800 MG, TID
     Route: 048
     Dates: start: 20120726
  7. BOCEPREVIR [Suspect]
     Indication: HEPATITIS C

REACTIONS (1)
  - Anaemia [Recovered/Resolved]
